FAERS Safety Report 6635653-0 (Version None)
Quarter: 2010Q1

REPORT INFORMATION
  Report Type: 
  Country: None (occurrence: None)
  Receive Date: 20100315
  Receipt Date: 20100304
  Transmission Date: 20100710
  Serious: Yes (Disabling, Other)
  Sender: FDA-Public Use
  Company Number: NL-AMGEN-US387212

PATIENT
  Age: 62 Year
  Sex: Male
  Weight: 70 kg

DRUGS (8)
  1. ENBREL [Suspect]
     Indication: RHEUMATOID ARTHRITIS
     Route: 058
     Dates: start: 20091201, end: 20100101
  2. PROPRANOLOL HYDROCHLORIDE [Concomitant]
     Route: 065
  3. ARTHROTEC [Concomitant]
     Dosage: 50 MG
     Route: 065
  4. ATACAND [Concomitant]
     Dosage: 8 MG
     Route: 065
  5. HYDROCHLOROTHIAZIDE [Concomitant]
     Indication: HYPERTENSION
     Dosage: 50 MG
     Route: 065
  6. FINASTERIDE [Concomitant]
     Dosage: 5 MG
     Route: 065
  7. METHOTREXATE [Concomitant]
     Indication: RHEUMATOID ARTHRITIS
     Dosage: 25 MG
     Route: 065
  8. ASCAL [Concomitant]
     Indication: CEREBROVASCULAR ACCIDENT
     Dosage: 100 MG
     Route: 065

REACTIONS (8)
  - INCORRECT STORAGE OF DRUG [None]
  - LISTLESS [None]
  - MALAISE [None]
  - PAIN IN EXTREMITY [None]
  - POOR QUALITY DRUG ADMINISTERED [None]
  - PYREXIA [None]
  - VISUAL ACUITY REDUCED [None]
  - WALKING DISABILITY [None]
